FAERS Safety Report 8036948 (Version 2)
Quarter: 2012Q4

REPORT INFORMATION
  Report Type: 
  Country: US (occurrence: US)
  Receive Date: 20110715
  Receipt Date: 20121130
  Transmission Date: 20130627
  Serious: Yes (Hospitalization)
  Sender: FDA-Public Use
  Company Number: US-JNJFOC-20110703444

PATIENT
  Age: 38 Year
  Sex: Female

DRUGS (4)
  1. ACETAMINOPHEN [Suspect]
     Route: 048
  2. ACETAMINOPHEN [Suspect]
     Indication: PRODUCT USED FOR UNKNOWN INDICATION
     Dosage: 21 grams over 5 days 1 g every 4 hours per day
     Route: 048
     Dates: start: 20081230, end: 20090103
  3. FLUCONAZOLE [Concomitant]
     Indication: FUNGAL INFECTION
     Dosage: 2 doses
     Dates: start: 20081211, end: 20081221
  4. CIPROFLOXACIN [Concomitant]
     Dates: start: 20090102

REACTIONS (2)
  - Overdose [Recovering/Resolving]
  - Liver injury [Recovering/Resolving]
